FAERS Safety Report 8594915-0 (Version None)
Quarter: 2012Q3

REPORT INFORMATION
  Report Type: 
  Country: None (occurrence: None)
  Receive Date: 20120815
  Receipt Date: 20120806
  Transmission Date: 20120928
  Serious: Yes (Hospitalization)
  Sender: FDA-Public Use
  Company Number: JP-PFIZER INC-2012197455

PATIENT
  Age: 80 Year
  Sex: Male

DRUGS (2)
  1. AMIODARONE HYDROCHLORIDE [Suspect]
     Indication: IMPLANTABLE DEFIBRILLATOR INSERTION
     Dosage: 200 MG, DAILY
     Route: 048
  2. LYRICA [Concomitant]
     Dosage: UNK

REACTIONS (2)
  - DRUG LEVEL DECREASED [None]
  - VENTRICULAR TACHYCARDIA [None]
